FAERS Safety Report 25834827 (Version 1)
Quarter: 2025Q3

REPORT INFORMATION
  Report Type: Spontaneous
  Country: US (occurrence: US)
  Receive Date: 20250923
  Receipt Date: 20250923
  Transmission Date: 20251020
  Serious: No
  Sender: BRISTOL-MYERS SQUIBB COMPANY
  Company Number: US-BRISTOL-MYERS SQUIBB COMPANY-2025-130262

PATIENT
  Age: 34 Year
  Sex: Male

DRUGS (2)
  1. KRAZATI [Suspect]
     Active Substance: ADAGRASIB
     Indication: Product used for unknown indication
  2. KRAZATI [Suspect]
     Active Substance: ADAGRASIB

REACTIONS (3)
  - Treatment noncompliance [Unknown]
  - Diarrhoea [Unknown]
  - Malaise [Unknown]
